FAERS Safety Report 5280047-6 (Version None)
Quarter: 2007Q1

REPORT INFORMATION
  Report Type: 
  Country: None (occurrence: None)
  Receive Date: 20070329
  Receipt Date: 20070315
  Transmission Date: 20070707
  Serious: Yes (Other)
  Sender: FDA-Public Use
  Company Number: GB-JNJFOC-20070303783

PATIENT

DRUGS (1)
  1. INFLIXIMAB [Suspect]
     Indication: POLYCHONDRITIS
     Dosage: 3 INFUSIONS, DATES UNSPECIFIED
     Route: 042

REACTIONS (1)
  - TRACHEAL STENOSIS [None]
